FAERS Safety Report 9303471 (Version 2)
Quarter: 2013Q3

REPORT INFORMATION
  Report Type: Report from Study
  Country: US (occurrence: US)
  Receive Date: 20130522
  Receipt Date: 20130710
  Transmission Date: 20140515
  Serious: Yes (Other)
  Sender: FDA-Public Use
  Company Number: US-ROCHE-1226746

PATIENT
  Sex: 0

DRUGS (1)
  1. VISMODEGIB [Suspect]
     Indication: MEDULLOBLASTOMA
     Route: 048

REACTIONS (7)
  - Lymphocyte count decreased [Unknown]
  - Embolism [Unknown]
  - Back pain [Unknown]
  - Syncope [Unknown]
  - Hypophosphataemia [Unknown]
  - Myalgia [Unknown]
  - Convulsion [Unknown]
